FAERS Safety Report 21233126 (Version 1)
Quarter: 2022Q3

REPORT INFORMATION
  Report Type: Spontaneous
  Country: GB (occurrence: GB)
  Receive Date: 20220819
  Receipt Date: 20220819
  Transmission Date: 20221027
  Serious: Yes (Hospitalization)
  Sender: FDA-Public Use
  Company Number: GB-JNJFOC-20220810113

PATIENT
  Age: 65 Year
  Sex: Male
  Weight: 68.4 kg

DRUGS (9)
  1. LENALIDOMIDE [Suspect]
     Active Substance: LENALIDOMIDE
     Indication: Plasma cell myeloma
     Dosage: UNIT DOSE : 15 MG, THERAPY DURATION : 104 DAYS
     Route: 048
     Dates: start: 20220315, end: 20220627
  2. DARZALEX [Suspect]
     Active Substance: DARATUMUMAB
     Indication: Plasma cell myeloma
     Dosage: UNIT DOSE : 15 ML, THERAPY DURATION : 141 DAYS
     Route: 058
     Dates: start: 20220214, end: 20220705
  3. TECLISTAMAB [Suspect]
     Active Substance: TECLISTAMAB
     Indication: Plasma cell myeloma
     Dosage: UNIT DOSE :1.1 ML, THERAPY DURATION : 140  DAYS
     Route: 058
     Dates: start: 20220215, end: 20220705
  4. ACYCLOVIR [Concomitant]
     Active Substance: ACYCLOVIR
     Indication: Prophylaxis
     Dosage: FREQUENCY : 1 , FREQUENCY TIME : 0.3  DAYS
     Route: 048
     Dates: start: 20190101
  5. COTRIMOXAZOLE [Concomitant]
     Active Substance: SULFAMETHOXAZOLE\TRIMETHOPRIM
     Indication: Prophylaxis
     Dosage: 160/800, FREQUENCY : 1 , FREQUENCY TIME : 0.3 WEEKS
     Route: 048
     Dates: start: 20190101
  6. LANSOPRAZOLE [Concomitant]
     Active Substance: LANSOPRAZOLE
     Indication: Hyperchlorhydria
     Dosage: 30 MILLIGRAM DAILY;
     Route: 048
     Dates: start: 20200101
  7. OLIVE OIL [Concomitant]
     Active Substance: OLIVE OIL
     Indication: Hypoacusis
     Route: 001
     Dates: start: 20220301
  8. ACETAMINOPHEN [Concomitant]
     Active Substance: ACETAMINOPHEN
     Indication: Oropharyngeal pain
     Dosage: UNIT DOSE :1 GRAM
     Route: 048
     Dates: start: 20220316
  9. TAMSULOSIN [Concomitant]
     Active Substance: TAMSULOSIN
     Indication: Urinary retention
     Route: 048
     Dates: start: 20200207

REACTIONS (1)
  - Anal abscess [Recovered/Resolved]

NARRATIVE: CASE EVENT DATE: 20220709
